FAERS Safety Report 7931501-7 (Version None)
Quarter: 2011Q4

REPORT INFORMATION
  Report Type: 
  Country: None (occurrence: None)
  Receive Date: 20111121
  Receipt Date: 20111121
  Transmission Date: 20120403
  Serious: Yes (Life-Threatening, Hospitalization)
  Sender: FDA-Public Use
  Company Number: None

PATIENT
  Age: 61 Year
  Sex: Male
  Weight: 83.914 kg

DRUGS (1)
  1. CYMBALTA [Suspect]
     Indication: BACK PAIN
     Dosage: 30 MGM
     Route: 048
     Dates: start: 20110301, end: 20111116

REACTIONS (14)
  - FLUSHING [None]
  - PARAESTHESIA [None]
  - BLOOD PRESSURE INCREASED [None]
  - FATIGUE [None]
  - INFLUENZA LIKE ILLNESS [None]
  - HYPERHIDROSIS [None]
  - DIZZINESS POSTURAL [None]
  - ABDOMINAL PAIN UPPER [None]
  - DECREASED APPETITE [None]
  - DRUG WITHDRAWAL SYNDROME [None]
  - BLOOD PRESSURE FLUCTUATION [None]
  - NIGHTMARE [None]
  - DIZZINESS [None]
  - NAUSEA [None]
